FAERS Safety Report 19840313 (Version 1)
Quarter: 2021Q3

REPORT INFORMATION
  Report Type: Spontaneous
  Country: US (occurrence: US)
  Receive Date: 20210916
  Receipt Date: 20210916
  Transmission Date: 20211014
  Serious: Yes (Death)
  Sender: FDA-Public Use
  Company Number: None

PATIENT
  Age: 61 Year
  Sex: Male

DRUGS (2)
  1. WARFARIN [Suspect]
     Active Substance: WARFARIN
  2. ENOXAPARIN [Suspect]
     Active Substance: ENOXAPARIN

REACTIONS (4)
  - Cerebral infarction [None]
  - Haematuria [None]
  - Intestinal mass [None]
  - Hepatic lesion [None]

NARRATIVE: CASE EVENT DATE: 20210909
